FAERS Safety Report 8505066-5 (Version None)
Quarter: 2012Q3

REPORT INFORMATION
  Report Type: 
  Country: None (occurrence: None)
  Receive Date: 20120712
  Receipt Date: 20120710
  Transmission Date: 20120928
  Serious: No
  Sender: FDA-Public Use
  Company Number: US-BAYER-2012-068982

PATIENT
  Age: 56 Year
  Sex: Female

DRUGS (1)
  1. CLIMARA PRO [Suspect]
     Dosage: UNK UNK, CONT
     Route: 015

REACTIONS (2)
  - HOT FLUSH [None]
  - MENOPAUSAL SYMPTOMS [None]
